FAERS Safety Report 10018256 (Version 1)
Quarter: 2014Q1

REPORT INFORMATION
  Report Type: Spontaneous
  Country: US (occurrence: US)
  Receive Date: 20140318
  Receipt Date: 20140318
  Transmission Date: 20141002
  Serious: No
  Sender: FDA-Public Use
  Company Number: US-BRISTOL-MYERS SQUIBB COMPANY-19712389

PATIENT
  Age: 83 Year
  Sex: Male

DRUGS (1)
  1. ERBITUX SOLN FOR INF [Suspect]
     Indication: NEOPLASM MALIGNANT
     Dosage: INTERRUPTED ON 28OCT13

REACTIONS (3)
  - Eye infection [Unknown]
  - Rash [Unknown]
  - Arthralgia [Unknown]
